FAERS Safety Report 8215594-8 (Version None)
Quarter: 2012Q1

REPORT INFORMATION
  Report Type: 
  Country: None (occurrence: None)
  Receive Date: 20120316
  Receipt Date: 20120307
  Transmission Date: 20120608
  Serious: Yes (Hospitalization)
  Sender: FDA-Public Use
  Company Number: CA-JNJFOC-20120304630

PATIENT
  Sex: Male
  Weight: 92 kg

DRUGS (10)
  1. REMICADE [Suspect]
     Indication: COLITIS ULCERATIVE
     Route: 042
  2. FERROUS SULFATE TAB [Concomitant]
     Route: 065
  3. MESALAMINE [Concomitant]
     Route: 065
  4. LIPIDIL [Concomitant]
     Route: 065
  5. PAROXETINE HCL [Concomitant]
     Route: 065
  6. ASPIRIN [Concomitant]
     Dosage: 80 (UNITS UNSPECIFIED), ONCE IN A DAY
     Route: 065
  7. XANAX [Concomitant]
     Route: 065
  8. ATORVASTATIN [Concomitant]
     Route: 065
  9. TRIANAL (NOS) [Concomitant]
     Route: 065
  10. IMURAN [Concomitant]
     Route: 065

REACTIONS (1)
  - ARTERIOGRAM CORONARY [None]
